FAERS Safety Report 11785282 (Version 4)
Quarter: 2015Q4

REPORT INFORMATION
  Report Type: Spontaneous
  Country: JP (occurrence: JP)
  Receive Date: 20151130
  Receipt Date: 20151224
  Transmission Date: 20160305
  Serious: Yes (Disabling, Other)
  Sender: FDA-Public Use
  Company Number: PHJP2015JP020926

PATIENT
  Age: 56 Year
  Sex: Male

DRUGS (4)
  1. NEORAL [Suspect]
     Active Substance: CYCLOSPORINE
     Dosage: 3.5 MG/KG, QD
     Route: 048
  2. NEORAL [Suspect]
     Active Substance: CYCLOSPORINE
     Dosage: 200 MG, QD
     Route: 048
     Dates: start: 20150501, end: 20150508
  3. NEORAL [Suspect]
     Active Substance: CYCLOSPORINE
     Indication: PSORIASIS
     Dosage: 2 MG/KG, QD
     Route: 048
  4. INFLIXIMAB [Suspect]
     Active Substance: INFLIXIMAB
     Indication: ARTHRALGIA
     Dosage: UNK
     Route: 041
     Dates: end: 20150430

REACTIONS (6)
  - Fall [Unknown]
  - Fracture [Recovered/Resolved]
  - Arthralgia [Unknown]
  - Rash [Unknown]
  - Joint dislocation [Recovered/Resolved]
  - Gait disturbance [Recovered/Resolved]

NARRATIVE: CASE EVENT DATE: 20150215
